FAERS Safety Report 14651753 (Version 1)
Quarter: 2018Q1

REPORT INFORMATION
  Report Type: Spontaneous
  Country: FR (occurrence: FR)
  Receive Date: 20180317
  Receipt Date: 20180317
  Transmission Date: 20180509
  Serious: Yes (Other)
  Sender: FDA-Public Use
  Company Number: FR-AUROBINDO-AUR-APL-2018-014317

PATIENT
  Age: 54 Year
  Sex: Male
  Weight: 87 kg

DRUGS (3)
  1. IBUPROFEN. [Suspect]
     Active Substance: IBUPROFEN
     Indication: ODYNOPHAGIA
     Dosage: ()
     Route: 048
     Dates: start: 20180203, end: 20180204
  2. ORACILLINE                         /00001801/ [Suspect]
     Active Substance: PENICILLIN V
     Indication: ODYNOPHAGIA
     Dosage: ()
     Route: 048
     Dates: start: 20180203, end: 20180204
  3. FERVEX                             /00372301/ [Concomitant]
     Active Substance: DICLOFENAC
     Indication: NASOPHARYNGITIS
     Dosage: ()
     Route: 048
     Dates: start: 20180202, end: 20180203

REACTIONS (1)
  - Acute generalised exanthematous pustulosis [Recovering/Resolving]

NARRATIVE: CASE EVENT DATE: 20180204
